FAERS Safety Report 8442591-X (Version None)
Quarter: 2012Q2

REPORT INFORMATION
  Report Type: 
  Country: None (occurrence: None)
  Receive Date: 20120615
  Receipt Date: 20120602
  Transmission Date: 20120825
  Serious: Yes (Other)
  Sender: FDA-Public Use
  Company Number: BR-BAYER-2012-055040

PATIENT
  Sex: Female

DRUGS (1)
  1. MOXIFLOXACIN [Suspect]
     Dosage: UNK
     Route: 048
     Dates: start: 20120602

REACTIONS (4)
  - SUFFOCATION FEELING [None]
  - HYPERSENSITIVITY [None]
  - BLOOD PRESSURE DECREASED [None]
  - RASH PAPULAR [None]
